FAERS Safety Report 14452426 (Version 6)
Quarter: 2018Q3

REPORT INFORMATION
  Report Type: Spontaneous
  Country: US (occurrence: US)
  Receive Date: 20180129
  Receipt Date: 20180925
  Transmission Date: 20181010
  Serious: Yes (Other)
  Sender: FDA-Public Use
  Company Number: US-PFIZER INC-2018035319

PATIENT
  Age: 73 Year
  Sex: Male

DRUGS (5)
  1. BYSTOLIC [Concomitant]
     Active Substance: NEBIVOLOL HYDROCHLORIDE
     Dosage: UNK
  2. SUTENT [Suspect]
     Active Substance: SUNITINIB MALATE
     Dosage: 50 MG, CYCLIC (1 CAPSULE BY MOUTH EVERY DAY ON DAYS 1?14 OF A 21 DAY CYCLE)
     Route: 048
     Dates: start: 201712
  3. SUTENT [Suspect]
     Active Substance: SUNITINIB MALATE
     Dosage: 50 MG, CYCLIC (1 CAPSULE BY MOUTH EVERY DAY ON DAYS 1?14 OF A 21 DAY CYCLE)
     Route: 048
     Dates: start: 20171220
  4. LISINOPRIL. [Concomitant]
     Active Substance: LISINOPRIL
     Dosage: 40 MG, UNK
  5. SUTENT [Suspect]
     Active Substance: SUNITINIB MALATE
     Indication: RENAL CANCER
     Dosage: 50 MG, CYCLIC (EVERY DAY ON DAYS 1?14 OF A 21 DAY CYCLE)
     Route: 048

REACTIONS (10)
  - Hypoaesthesia [Unknown]
  - Helicobacter infection [Not Recovered/Not Resolved]
  - Nausea [Not Recovered/Not Resolved]
  - Hypertension [Unknown]
  - Dysgeusia [Not Recovered/Not Resolved]
  - Weight decreased [Not Recovered/Not Resolved]
  - Fatigue [Unknown]
  - Photophobia [Unknown]
  - Diarrhoea [Unknown]
  - Contusion [Unknown]
